FAERS Safety Report 8173237 (Version 2)
Quarter: 2012Q4

REPORT INFORMATION
  Report Type: Report from Study
  Country: US (occurrence: US)
  Receive Date: 20111007
  Receipt Date: 20121030
  Transmission Date: 20130627
  Serious: No
  Sender: FDA-Public Use
  Company Number: US-ABBOTT-11P-163-0840649-00

PATIENT
  Age: 32 Year
  Sex: Female

DRUGS (6)
  1. KALETRA TABLETS [Suspect]
     Indication: ANTIRETROVIRAL THERAPY
     Route: 048
  2. EPZICOM [Suspect]
     Indication: ANTIRETROVIRAL THERAPY
     Dosage: 1 tabs/caps daily
     Route: 048
  3. RETROVIR [Suspect]
     Indication: ANTIRETROVIRAL THERAPY
     Dosage: Course 1: 2 mg/kg/hr
     Route: 042
     Dates: start: 20110703, end: 20110703
  4. RETROVIR [Suspect]
     Dosage: Course 2: 1 mg/kg/hr
     Route: 042
     Dates: start: 20110703, end: 20110703
  5. XANAX [Concomitant]
     Indication: PRODUCT USED FOR UNKNOWN INDICATION
  6. PCP [Concomitant]
     Indication: PRODUCT USED FOR UNKNOWN INDICATION

REACTIONS (4)
  - Thrombocytopenia [Unknown]
  - Depression [Unknown]
  - Bipolar I disorder [Unknown]
  - Treatment noncompliance [Unknown]
